FAERS Safety Report 8221922-X (Version None)
Quarter: 2012Q1

REPORT INFORMATION
  Report Type: 
  Country: None (occurrence: None)
  Receive Date: 20120320
  Receipt Date: 20120309
  Transmission Date: 20120608
  Serious: Yes (Hospitalization, Other)
  Sender: FDA-Public Use
  Company Number: US-JNJFOC-20120306279

PATIENT
  Sex: Male

DRUGS (1)
  1. REMICADE [Suspect]
     Indication: COLITIS
     Route: 042
     Dates: start: 20120101

REACTIONS (5)
  - ORAL INFECTION [None]
  - ASTHENIA [None]
  - WEIGHT DECREASED [None]
  - PRODUCT QUALITY ISSUE [None]
  - FALL [None]
